FAERS Safety Report 10241119 (Version 1)
Quarter: 2014Q1

REPORT INFORMATION
  Report Type: Spontaneous
  Country: US (occurrence: None)
  Receive Date: 20140306
  Receipt Date: 20140306
  Transmission Date: 20141002
  Serious: Yes (Hospitalization)
  Sender: FDA-Public Use
  Company Number: 163-21880-13041149

PATIENT
  Age: 84 Year
  Sex: Female
  Weight: 64.41 kg

DRUGS (9)
  1. REVLIMID (LENALIDOMIDE) (CAPSULES) [Suspect]
     Indication: MYELODYSPLASTIC SYNDROME
     Dosage: 10 MG, 21 IN 21 D, PO
     Route: 048
     Dates: start: 20121022
  2. ARANESP (DARBEPOETIN ALFA) (UNKNOWN) [Concomitant]
  3. METOPROLOL (METOPROLOL) (UNKNOWN) [Concomitant]
  4. PROTONIX (UNKNOWN) [Concomitant]
  5. PRANDIN (REPAGLINIDE) (UNKNOWN [Concomitant]
  6. FLUCONAZOLE (FLUCONAZOLE) (UNKNOWN) [Concomitant]
  7. VITAMIN B 6 (PYRIDOXINE HYDROCHLORIDE) (UNKNOWN) [Concomitant]
  8. HUMALOG (INSULIN LISPRO) (UNKNOWN) [Concomitant]
  9. TRAMADOL (TRAMADOL) (UNKNOWN) [Concomitant]

REACTIONS (1)
  - Arthritis infective [None]
